FAERS Safety Report 4915545-5 (Version None)
Quarter: 2006Q1

REPORT INFORMATION
  Report Type: 
  Country: None (occurrence: None)
  Receive Date: 20060113
  Receipt Date: 20050926
  Transmission Date: 20060701
  Serious: No
  Sender: FDA-Public Use
  Company Number: 2005SP003194

PATIENT
  Age: 42 Year
  Sex: Female
  Weight: 92.9874 kg

DRUGS (7)
  1. LUNESTA [Suspect]
     Dosage: 2 MG;HS;ORAL
     Route: 048
     Dates: start: 20050901, end: 20050901
  2. LUNESTA [Suspect]
     Dosage: 2 MG;HS;ORAL
     Route: 048
     Dates: start: 20050922, end: 20050922
  3. LUNESTA [Suspect]
     Dosage: 2 MG;HS;ORAL
     Route: 048
     Dates: start: 20050925, end: 20050925
  4. ZELNORM /USA/ [Concomitant]
  5. ACIPHEX [Concomitant]
  6. WELLBUTRIN [Concomitant]
  7. AMBIEN [Concomitant]

REACTIONS (3)
  - DRUG INEFFECTIVE [None]
  - FATIGUE [None]
  - INSOMNIA [None]
